FAERS Safety Report 13632388 (Version 1)
Quarter: 2017Q2

REPORT INFORMATION
  Report Type: Spontaneous
  Country: US (occurrence: US)
  Receive Date: 20170531
  Receipt Date: 20170531
  Transmission Date: 20170830
  Serious: No
  Sender: FDA-Public Use
  Company Number: US-ASTELLAS-1456116

PATIENT
  Sex: Female

DRUGS (5)
  1. IBUPROFEN. [Concomitant]
     Active Substance: IBUPROFEN
  2. TARCEVA [Suspect]
     Active Substance: ERLOTINIB HYDROCHLORIDE
     Indication: NON-SMALL CELL LUNG CANCER
     Route: 048
     Dates: start: 20130301
  3. TARCEVA [Suspect]
     Active Substance: ERLOTINIB HYDROCHLORIDE
     Route: 048
  4. CLONIDINE. [Concomitant]
     Active Substance: CLONIDINE
  5. OSIMERTINIB [Concomitant]
     Active Substance: OSIMERTINIB

REACTIONS (5)
  - Acne [Unknown]
  - Rash [Unknown]
  - Dry skin [Unknown]
  - Acne [Recovering/Resolving]
  - Fatigue [Unknown]
